FAERS Safety Report 26174956 (Version 1)
Quarter: 2025Q4

REPORT INFORMATION
  Report Type: Report from Study
  Country: AR (occurrence: AR)
  Receive Date: 20251218
  Receipt Date: 20251218
  Transmission Date: 20260117
  Serious: Yes (Hospitalization, Other)
  Sender: ELI LILLY AND COMPANY
  Company Number: AR-Merck Healthcare KGaA-2025063672

PATIENT
  Age: 57 Year
  Sex: Male

DRUGS (1)
  1. CETUXIMAB [Suspect]
     Active Substance: CETUXIMAB
     Indication: Colorectal cancer
     Dosage: 800 MG, UNKNOWN
     Route: 042
     Dates: start: 20250127

REACTIONS (2)
  - General physical health deterioration [Not Recovered/Not Resolved]
  - Terminal state [Unknown]
